FAERS Safety Report 19267158 (Version 15)
Quarter: 2022Q2

REPORT INFORMATION
  Report Type: Spontaneous
  Country: CA (occurrence: CA)
  Receive Date: 20210518
  Receipt Date: 20220530
  Transmission Date: 20220721
  Serious: Yes (Other)
  Sender: FDA-Public Use
  Company Number: CA-CELLTRION INC.-2020CA028491

PATIENT

DRUGS (18)
  1. INFLECTRA [Suspect]
     Active Substance: INFLIXIMAB-DYYB
     Indication: Colitis ulcerative
     Dosage: 10 MG/KG EVERY 8 WEEKS (INDUCTION AT Q 0, 2, 6 WEEKS, 10MG/KG FOR LOADING DOSES, THEN 5MG/KG)
     Route: 042
     Dates: start: 20200924, end: 20210501
  2. INFLECTRA [Suspect]
     Active Substance: INFLIXIMAB-DYYB
     Dosage: 10MG/KG FOR LOADING DOSES SCHEDULED FOR EVERY 0, 2, 6 WEEKS, THEN 5MG/KG EVERY 8 WEEKS
     Route: 042
     Dates: start: 20200924
  3. INFLECTRA [Suspect]
     Active Substance: INFLIXIMAB-DYYB
     Dosage: 1 DF
     Route: 042
     Dates: start: 20200924, end: 20220228
  4. INFLECTRA [Suspect]
     Active Substance: INFLIXIMAB-DYYB
     Dosage: 10MG/KG FOR LOADING DOSES SCHEDULED FOR EVERY 0, 2, 6 WEEKS, THEN 5MG/KG EVERY 8 WEEKS
     Route: 042
     Dates: start: 20201027
  5. INFLECTRA [Suspect]
     Active Substance: INFLIXIMAB-DYYB
     Dosage: 10MG/KG FOR LOADING DOSES SCHEDULED FOR EVERY 0, 2, 6 WEEKS, THEN 5MG/KG EVERY 8 WEEKS
     Route: 042
     Dates: start: 20201231, end: 20201231
  6. INFLECTRA [Suspect]
     Active Substance: INFLIXIMAB-DYYB
     Dosage: 10MG/KG FOR LOADING DOSES SCHEDULED FOR EVERY 0, 2, 6 WEEKS, THEN 5MG/KG EVERY 8 WEEKS
     Route: 042
     Dates: start: 20210306
  7. INFLECTRA [Suspect]
     Active Substance: INFLIXIMAB-DYYB
     Dosage: 10MG/KG FOR LOADING DOSES SCHEDULED FOR EVERY 0, 2, 6 WEEKS, THEN 5MG/KG EVERY 8 WEEKS
     Route: 042
     Dates: start: 20210501
  8. INFLECTRA [Suspect]
     Active Substance: INFLIXIMAB-DYYB
     Dosage: 10 MG/KG EVER 4 WEEKS 1300 MG
     Route: 042
     Dates: start: 20210528, end: 20220228
  9. INFLECTRA [Suspect]
     Active Substance: INFLIXIMAB-DYYB
     Dosage: 10 MG/KG, EVERY 4 WEEKS
     Route: 042
     Dates: start: 20210528
  10. INFLECTRA [Suspect]
     Active Substance: INFLIXIMAB-DYYB
     Dosage: 10 MG/KG, EVERY 4 WEEKS
     Route: 042
     Dates: start: 20210528, end: 20220228
  11. INFLECTRA [Suspect]
     Active Substance: INFLIXIMAB-DYYB
     Dosage: 10 MG/KG, EVERY 4 WEEKS
     Route: 042
     Dates: start: 20210626
  12. INFLECTRA [Suspect]
     Active Substance: INFLIXIMAB-DYYB
     Dosage: 10 MG/KG, EVERY 4 WEEKS
     Route: 042
     Dates: start: 20210723
  13. INFLECTRA [Suspect]
     Active Substance: INFLIXIMAB-DYYB
     Dosage: 10 MG/KG, EVERY 4 WEEKS
     Route: 042
     Dates: start: 20211029
  14. INFLECTRA [Suspect]
     Active Substance: INFLIXIMAB-DYYB
     Dosage: 10 MG/KG, EVERY 4 WEEKS
     Route: 042
     Dates: start: 20211204
  15. INFLECTRA [Suspect]
     Active Substance: INFLIXIMAB-DYYB
     Dosage: 10 MG/KG, EVERY 4 WEEKS
     Route: 042
     Dates: start: 20211231
  16. INFLECTRA [Suspect]
     Active Substance: INFLIXIMAB-DYYB
     Dosage: 10 MG/KG, EVERY 4 WEEKS
     Route: 042
     Dates: start: 20220131
  17. INFLECTRA [Suspect]
     Active Substance: INFLIXIMAB-DYYB
     Dosage: 10 MG/KG, EVERY 4 WEEKS
     Route: 042
     Dates: start: 20220228
  18. BENADRYL [Concomitant]
     Active Substance: DIPHENHYDRAMINE HYDROCHLORIDE
     Indication: Premedication
     Dosage: 50 MG
     Route: 048

REACTIONS (20)
  - Pruritus [Recovering/Resolving]
  - Erythema [Recovering/Resolving]
  - Diabetes mellitus [Not Recovered/Not Resolved]
  - Drug level decreased [Unknown]
  - Drug specific antibody present [Unknown]
  - Psoriasis [Unknown]
  - Pruritus [Recovered/Resolved]
  - Rash [Unknown]
  - Alopecia [Unknown]
  - Skin burning sensation [Unknown]
  - Dry skin [Unknown]
  - Stress [Unknown]
  - Urticaria [Unknown]
  - Condition aggravated [Recovering/Resolving]
  - Arthralgia [Recovered/Resolved]
  - Weight decreased [Unknown]
  - Inappropriate schedule of product administration [Unknown]
  - Off label use [Unknown]
  - Off label use [Unknown]
  - Muscle spasms [Recovered/Resolved]

NARRATIVE: CASE EVENT DATE: 20200901
